FAERS Safety Report 17707058 (Version 1)
Quarter: 2020Q2

REPORT INFORMATION
  Report Type: Spontaneous
  Country: US (occurrence: US)
  Receive Date: 20200424
  Receipt Date: 20200424
  Transmission Date: 20200714
  Serious: No
  Sender: FDA-Public Use
  Company Number: US-GALDERMA-US2020009464

PATIENT
  Age: 19 Year
  Sex: Male

DRUGS (6)
  1. PROACTIV T-ZONE OIL ABSORBER [Concomitant]
     Indication: ERYTHEMA
     Route: 061
     Dates: start: 20200131, end: 20200210
  2. PROACTIV MD DEEP CLEANSING FACE WASH [Concomitant]
     Active Substance: COSMETICS
     Indication: ERYTHEMA
     Route: 061
     Dates: start: 20200131, end: 20200210
  3. PROACTIV MD DAILY OIL CONTROL SPF 30 [Suspect]
     Active Substance: AVOBENZONE\OCTISALATE\OCTOCRYLENE
     Indication: ERYTHEMA
     Route: 061
     Dates: start: 20200131, end: 20200210
  4. PROACTIV MD ADAPALENE ACNE TREATMENT [Suspect]
     Active Substance: ADAPALENE
     Indication: ERYTHEMA
     Dosage: 0.1%
     Route: 061
     Dates: start: 20200131, end: 20200210
  5. PROACTIV REDNESS RELIEF SERUM [Concomitant]
     Indication: ERYTHEMA
     Route: 061
     Dates: start: 20200131, end: 20200210
  6. PROACTIV AMAZONIAN CLAY MASK [Concomitant]
     Indication: ERYTHEMA
     Route: 061
     Dates: start: 20200131, end: 20200210

REACTIONS (2)
  - Skin burning sensation [Recovering/Resolving]
  - Product use in unapproved indication [Recovered/Resolved]

NARRATIVE: CASE EVENT DATE: 20200131
